FAERS Safety Report 8314107-X (Version None)
Quarter: 2012Q2

REPORT INFORMATION
  Report Type: 
  Country: None (occurrence: None)
  Receive Date: 20120426
  Receipt Date: 20120423
  Transmission Date: 20120825
  Serious: Yes (Death)
  Sender: FDA-Public Use
  Company Number: GB-B.I. PHARMACEUTICALS,INC./RIDGEFIELD-2012-UK-00551UK

PATIENT

DRUGS (2)
  1. PRADAXA [Suspect]
  2. ENOXAPARIN SODIUM [Suspect]

REACTIONS (2)
  - HAEMORRHAGE [None]
  - DRUG PRESCRIBING ERROR [None]
